APPROVED DRUG PRODUCT: CIMETIDINE
Active Ingredient: CIMETIDINE
Strength: 800MG
Dosage Form/Route: TABLET;ORAL
Application: A074316 | Product #001
Applicant: WATSON LABORATORIES INC
Approved: Feb 28, 1996 | RLD: No | RS: No | Type: DISCN